FAERS Safety Report 6912980-0 (Version None)
Quarter: 2010Q3

REPORT INFORMATION
  Report Type: 
  Country: None (occurrence: None)
  Receive Date: 20100806
  Receipt Date: 20090514
  Transmission Date: 20110219
  Serious: No
  Sender: FDA-Public Use
  Company Number: US-PFIZER INC-2009184791

PATIENT

DRUGS (3)
  1. GLUCOTROL [Suspect]
     Dosage: UNK
  2. SITAGLIPTIN PHOSPHATE [Suspect]
     Dosage: UNK
  3. EXENATIDE [Suspect]
     Dosage: UNK

REACTIONS (1)
  - HYPOGLYCAEMIA [None]
